FAERS Safety Report 6016963-7 (Version None)
Quarter: 2008Q4

REPORT INFORMATION
  Report Type: 
  Country: None (occurrence: None)
  Receive Date: 20081222
  Receipt Date: 20081218
  Transmission Date: 20090506
  Serious: Yes (Other)
  Sender: FDA-Public Use
  Company Number: CH-ALLERGAN-0813765US

PATIENT
  Sex: Female

DRUGS (2)
  1. BOTOX [Suspect]
     Indication: DRUG USE FOR UNKNOWN INDICATION
     Dosage: UNK, SINGLE
     Dates: start: 20081007, end: 20081007
  2. BOTOX [Suspect]
     Dosage: UNK, SINGLE
     Dates: start: 20030101, end: 20030101

REACTIONS (1)
  - HEPATITIS B [None]
